FAERS Safety Report 4875183-X (Version None)
Quarter: 2006Q1

REPORT INFORMATION
  Report Type: 
  Country: None (occurrence: None)
  Receive Date: 20060104
  Receipt Date: 20051221
  Transmission Date: 20060701
  Serious: Yes (Other)
  Sender: FDA-Public Use
  Company Number: 2005S1000335

PATIENT
  Age: 68 Year
  Sex: Male

DRUGS (1)
  1. SORIATANE [Suspect]
     Indication: PSORIASIS
     Dosage: 45 MG;QD;PO
     Route: 048
     Dates: start: 19780101, end: 19880101

REACTIONS (1)
  - PULMONARY FIBROSIS [None]
